FAERS Safety Report 7080847-6 (Version None)
Quarter: 2010Q4

REPORT INFORMATION
  Report Type: 
  Country: None (occurrence: None)
  Receive Date: 20101103
  Receipt Date: 20101022
  Transmission Date: 20110411
  Serious: Yes (Life-Threatening, Other)
  Sender: FDA-Public Use
  Company Number: JP-PFIZER INC-2009244650

PATIENT
  Age: 14 Year
  Sex: Female
  Weight: 36 kg

DRUGS (17)
  1. SILDENAFIL CITRATE [Suspect]
     Indication: PULMONARY ARTERIAL HYPERTENSION
     Dosage: 20 MG, 3X/DAY
     Route: 048
     Dates: start: 20080630
  2. TRACLEER [Suspect]
     Indication: PULMONARY ARTERIAL HYPERTENSION
     Dosage: 125 MG, 2X/DAY
     Route: 048
     Dates: start: 20081118, end: 20090510
  3. TRACLEER [Suspect]
     Dosage: UNK
     Route: 048
     Dates: start: 20070808, end: 20080713
  4. FLOLAN [Suspect]
     Indication: PULMONARY HYPERTENSION
     Dosage: UNK
     Route: 042
     Dates: start: 20081229
  5. LASIX [Concomitant]
     Indication: PULMONARY ARTERIAL HYPERTENSION
     Dosage: 40 MG, 2X/DAY
     Route: 048
     Dates: start: 20070630
  6. DORNER [Concomitant]
     Dosage: 15 UG, 3X/DAY
     Route: 048
     Dates: start: 20070719, end: 20090105
  7. RITUXAN [Concomitant]
     Dosage: UNK
     Route: 042
     Dates: start: 20080702, end: 20090623
  8. ZYLORIC ^GLAXO WELLCOME^ [Concomitant]
     Dosage: 100 MG, 3X/DAY
     Route: 048
     Dates: start: 20071017
  9. SINGULAIR [Concomitant]
     Dosage: 5 MG, 1X/DAY
     Route: 048
     Dates: start: 20080229
  10. TAKEPRON [Concomitant]
     Dosage: 30 MG, 1X/DAY
     Route: 048
     Dates: start: 20071017
  11. PREDNISOLONE [Concomitant]
     Dosage: 2 MG, 3X/DAY
     Route: 048
     Dates: start: 20001105
  12. CELLCEPT [Concomitant]
     Dosage: UNK
     Route: 048
     Dates: start: 20080702
  13. ALDACTONE [Concomitant]
     Dosage: 25 MG, 1X/DAY
     Route: 048
     Dates: start: 20080717
  14. MEXITIL [Concomitant]
     Dosage: 50 MG, 3X/DAY
     Route: 048
     Dates: start: 20080713
  15. HOKUNALIN [Concomitant]
     Dosage: 2 MG, 1X/DAY
     Route: 062
     Dates: start: 20080229
  16. SLOW-K [Concomitant]
     Dosage: 1200 MG, 2X/DAY
     Route: 048
     Dates: start: 20080331
  17. LIMETHASONE [Concomitant]
     Dosage: 1 ML, 1X/DAY
     Route: 042

REACTIONS (3)
  - HISTIOCYTOSIS HAEMATOPHAGIC [None]
  - THROMBOCYTOPENIA [None]
  - VENTRICULAR FIBRILLATION [None]
